FAERS Safety Report 10137242 (Version 1)
Quarter: 2014Q2

REPORT INFORMATION
  Report Type: Spontaneous
  Country: US (occurrence: US)
  Receive Date: 20140429
  Receipt Date: 20140429
  Transmission Date: 20141212
  Serious: No
  Sender: FDA-Public Use
  Company Number: US-ABBVIE-14P-163-1209435-00

PATIENT
  Age: 61 Year
  Sex: Male
  Weight: 81.72 kg

DRUGS (2)
  1. ANDROGEL [Suspect]
     Indication: BLOOD TESTOSTERONE DECREASED
     Dosage: 2 PUMPS DAILY
     Route: 061
     Dates: start: 201309, end: 20140101
  2. BENICAR [Concomitant]
     Indication: HYPERTENSION

REACTIONS (6)
  - Alopecia [Recovered/Resolved]
  - Mood swings [Recovered/Resolved]
  - Drug ineffective [Not Recovered/Not Resolved]
  - Alopecia [Recovered/Resolved]
  - Mood swings [Recovered/Resolved]
  - Blood testosterone decreased [Not Recovered/Not Resolved]
